FAERS Safety Report 23574554 (Version 1)
Quarter: 2024Q1

REPORT INFORMATION
  Report Type: Report from Study
  Country: CA (occurrence: CA)
  Receive Date: 20240228
  Receipt Date: 20240228
  Transmission Date: 20240410
  Serious: Yes (Other)
  Sender: FDA-Public Use
  Company Number: None

PATIENT
  Age: 87 Year
  Sex: Female

DRUGS (20)
  1. METHOTREXATE [Suspect]
     Active Substance: METHOTREXATE
     Indication: Product used for unknown indication
     Route: 065
  2. TOFACITINIB [Suspect]
     Active Substance: TOFACITINIB
     Indication: Product used for unknown indication
     Route: 065
  3. ACTEMRA [Suspect]
     Active Substance: TOCILIZUMAB
     Indication: Rheumatoid arthritis
     Dosage: SOLUTION FOR INJECTION IN PRE-FILLED SYRINGE, 1 EVERY 1 WEEKS
     Route: 058
  4. ABATACEPT [Suspect]
     Active Substance: ABATACEPT
     Indication: Product used for unknown indication
     Dosage: 1 EVERY 1 WEEKS
     Route: 058
  5. ETANERCEPT [Suspect]
     Active Substance: ETANERCEPT
     Indication: Product used for unknown indication
     Route: 065
  6. ARAVA [Suspect]
     Active Substance: LEFLUNOMIDE
     Indication: Product used for unknown indication
     Route: 065
  7. SIMPONI [Suspect]
     Active Substance: GOLIMUMAB
     Indication: Product used for unknown indication
     Dosage: SOLUTION SUBCUTANEOUS
     Route: 065
  8. APIXABAN [Concomitant]
     Active Substance: APIXABAN
     Route: 065
  9. BISOPROLOL [Concomitant]
     Active Substance: BISOPROLOL\BISOPROLOL FUMARATE
     Route: 065
  10. COLCHICINE [Concomitant]
     Active Substance: COLCHICINE
  11. DIGOXIN [Concomitant]
     Active Substance: DIGOXIN
  12. FUROSEMIDE [Concomitant]
     Active Substance: FUROSEMIDE
     Dosage: 1 EVERY 1 DAYS
     Route: 065
  13. GABAPENTIN [Concomitant]
     Active Substance: GABAPENTIN
     Route: 065
  14. HYDROMORPHONE HYDROCHLORIDE [Concomitant]
     Active Substance: HYDROMORPHONE HYDROCHLORIDE
     Route: 065
  15. LEFLUNOMIDE [Concomitant]
     Active Substance: LEFLUNOMIDE
  16. PANTOPRAZOLE [Concomitant]
     Active Substance: PANTOPRAZOLE
     Dosage: 1 EVERY 1 DAYS
     Route: 065
  17. PREDNISONE [Concomitant]
     Active Substance: PREDNISONE
     Dosage: 1 EVERY 1 DAYS
     Route: 065
  18. RABEPRAZOLE SODIUM [Concomitant]
     Active Substance: RABEPRAZOLE SODIUM
  19. ROSUVASTATIN CALCIUM [Concomitant]
     Active Substance: ROSUVASTATIN CALCIUM
     Dosage: 1 EVERY 1 DAYS
     Route: 065
  20. TYLENOL [Concomitant]
     Active Substance: ACETAMINOPHEN

REACTIONS (20)
  - Arthralgia [Recovering/Resolving]
  - Atrial fibrillation [Recovering/Resolving]
  - Bone swelling [Recovering/Resolving]
  - Cough [Recovering/Resolving]
  - Discomfort [Recovering/Resolving]
  - Drug ineffective [Recovering/Resolving]
  - Dyspnoea [Recovering/Resolving]
  - Fatigue [Recovering/Resolving]
  - Interstitial lung disease [Recovering/Resolving]
  - Joint stiffness [Recovering/Resolving]
  - Joint swelling [Recovering/Resolving]
  - Loss of personal independence in daily activities [Recovering/Resolving]
  - Oedema [Recovering/Resolving]
  - Pain [Recovering/Resolving]
  - Rheumatoid arthritis [Recovering/Resolving]
  - Rheumatoid nodule [Recovering/Resolving]
  - Swelling [Recovering/Resolving]
  - Tooth abscess [Recovering/Resolving]
  - Treatment failure [Recovering/Resolving]
  - Wrist deformity [Recovering/Resolving]
